FAERS Safety Report 7249582-5 (Version None)
Quarter: 2011Q1

REPORT INFORMATION
  Report Type: 
  Country: None (occurrence: None)
  Receive Date: 20110128
  Receipt Date: 20101215
  Transmission Date: 20110831
  Serious: Yes (Hospitalization, Other)
  Sender: FDA-Public Use
  Company Number: US-BAYER-201028020NA

PATIENT
  Sex: Female
  Weight: 62.585 kg

DRUGS (7)
  1. MULTI-VITAMIN [Concomitant]
     Dosage: UNK UNK, QD
  2. UNCODEABLE ^UNCLASSIFIABLE^ [Concomitant]
     Dosage: 1200 MG, QD
  3. FLAX SEED OIL [Concomitant]
     Dosage: 1000 MG, QD
  4. YAZ [Suspect]
     Indication: PRODUCT USED FOR UNKNOWN INDICATION
     Dosage: UNK UNK, QD
     Route: 048
     Dates: start: 20060501, end: 20090701
  5. NAPROXEN [Concomitant]
     Dosage: 500 MG, UNK
  6. HYDROCODONE BITARTRATE AND ACETAMINOPHEN [Concomitant]
     Dosage: 500 MG, UNK
  7. HYOSCYAMINE [Concomitant]

REACTIONS (6)
  - MUSCULOSKELETAL PAIN [None]
  - PULMONARY EMBOLISM [None]
  - INJECTION SITE PAIN [None]
  - CONTUSION [None]
  - PAIN [None]
  - DEEP VEIN THROMBOSIS [None]
